FAERS Safety Report 11098853 (Version 1)
Quarter: 2015Q2

REPORT INFORMATION
  Report Type: Report from Study
  Country: KR (occurrence: KR)
  Receive Date: 20150508
  Receipt Date: 20150508
  Transmission Date: 20150821
  Serious: Yes (Other)
  Sender: FDA-Public Use
  Company Number: KR-ROCHE-1572358

PATIENT

DRUGS (5)
  1. RITUXIMAB [Suspect]
     Active Substance: RITUXIMAB
     Indication: DIFFUSE LARGE B-CELL LYMPHOMA
     Route: 042
  2. VINCRISTINE [Suspect]
     Active Substance: VINCRISTINE
     Indication: DIFFUSE LARGE B-CELL LYMPHOMA
     Route: 065
  3. PREDNISONE. [Suspect]
     Active Substance: PREDNISONE
     Indication: DIFFUSE LARGE B-CELL LYMPHOMA
     Route: 065
  4. DOXORUBICIN [Suspect]
     Active Substance: DOXORUBICIN
     Indication: DIFFUSE LARGE B-CELL LYMPHOMA
     Route: 065
  5. CYCLOPHOSPHAMIDE. [Suspect]
     Active Substance: CYCLOPHOSPHAMIDE
     Indication: DIFFUSE LARGE B-CELL LYMPHOMA
     Route: 065

REACTIONS (11)
  - Bone marrow failure [Unknown]
  - Neutropenia [Unknown]
  - Gastrointestinal toxicity [Recovered/Resolved]
  - Treatment failure [Unknown]
  - Neurotoxicity [Recovered/Resolved]
  - Dermatitis [Recovered/Resolved]
  - Mucosal inflammation [Recovered/Resolved]
  - Acute myeloid leukaemia [Unknown]
  - Dry mouth [Recovered/Resolved]
  - Febrile neutropenia [Unknown]
  - Anaemia [Unknown]
